FAERS Safety Report 4526392-0 (Version None)
Quarter: 2004Q4

REPORT INFORMATION
  Report Type: 
  Country: None (occurrence: None)
  Receive Date: 20041213
  Receipt Date: 20010515
  Transmission Date: 20050328
  Serious: Yes (Death)
  Sender: FDA-Public Use
  Company Number: 200100464

PATIENT
  Age: 74 Year
  Sex: Male

DRUGS (5)
  1. MILRINONE LACTATE [Suspect]
     Indication: CARDIAC FAILURE ACUTE
     Dosage: 25.6 )) DAY, DR
     Dates: start: 20010512, end: 20010514
  2. MILRINONE LACTATE [Concomitant]
  3. ACARDI/PIMOBENDAN [Concomitant]
  4. MILLISOL/NITROGLYCERIN [Concomitant]
  5. UNSPECIFIED DIURETICS [Concomitant]

REACTIONS (7)
  - CARDIAC FAILURE [None]
  - CARDIO-RESPIRATORY ARREST [None]
  - CORONARY ARTERY DISEASE [None]
  - LOSS OF CONSCIOUSNESS [None]
  - SHOCK [None]
  - VENTRICULAR FIBRILLATION [None]
  - VENTRICULAR TACHYCARDIA [None]
